FAERS Safety Report 10790127 (Version 1)
Quarter: 2015Q1

REPORT INFORMATION
  Report Type: Spontaneous
  Country: US (occurrence: US)
  Receive Date: 20150212
  Receipt Date: 20150212
  Transmission Date: 20150721
  Serious: No
  Sender: FDA-Public Use
  Company Number: US-BAYER-2015-020667

PATIENT
  Age: 78 Year
  Sex: Female
  Weight: 58.96 kg

DRUGS (6)
  1. ALEVE [Suspect]
     Active Substance: NAPROXEN SODIUM
     Indication: INFLAMMATION
     Dosage: 2 DF, BID
     Route: 048
     Dates: start: 2008
  2. VITAMIN E [Concomitant]
     Active Substance: .ALPHA.-TOCOPHEROL
     Dosage: UNK
  3. VITAMIN D [Concomitant]
     Active Substance: CHOLECALCIFEROL
     Dosage: UNK
  4. ALEVE [Suspect]
     Active Substance: NAPROXEN SODIUM
     Indication: ANALGESIC THERAPY
     Dosage: 1 - 2 DF, PRN
     Route: 048
  5. BAYER LOW DOSE [Suspect]
     Active Substance: ASPIRIN
     Indication: ANALGESIC THERAPY
     Dosage: 1 DF, WHEN SHE REMEMBERED TOO
     Route: 048
     Dates: end: 2011
  6. BAYER LOW DOSE [Suspect]
     Active Substance: ASPIRIN
     Indication: INFLAMMATION

REACTIONS (2)
  - Extra dose administered [None]
  - Medication error [None]

NARRATIVE: CASE EVENT DATE: 2008
